FAERS Safety Report 24889558 (Version 1)
Quarter: 2025Q1

REPORT INFORMATION
  Report Type: Spontaneous
  Country: US (occurrence: None)
  Receive Date: 20250125
  Receipt Date: 20250125
  Transmission Date: 20250409
  Serious: Yes (Hospitalization)
  Sender: FDA-CTU
  Company Number: None

PATIENT
  Sex: Female

DRUGS (6)
  1. HUMIRA [Suspect]
     Active Substance: ADALIMUMAB
     Indication: Osteoarthritis
     Route: 058
     Dates: start: 20180324
  2. FOLIC ACID TAB 400MCG [Concomitant]
  3. FOLIC ACID TAB 400MCG [Concomitant]
  4. PLAOUENIL TAB 200MG [Concomitant]
  5. SYNTHROID [Concomitant]
     Active Substance: LEVOTHYROXINE SODIUM
  6. TOPROL XL TAB 100MG [Concomitant]

REACTIONS (1)
  - Osteoarthritis [None]
